FAERS Safety Report 22936077 (Version 2)
Quarter: 2024Q1

REPORT INFORMATION
  Report Type: Spontaneous
  Country: US (occurrence: US)
  Receive Date: 20230912
  Receipt Date: 20240126
  Transmission Date: 20240409
  Serious: Yes (Congenital Anomaly, Other)
  Sender: FDA-Public Use
  Company Number: US-UPSHER-SMITH LABORATORIES, LLC-2023USL00776

PATIENT
  Age: 0 Year
  Sex: Male
  Weight: 3.991 kg

DRUGS (13)
  1. ISOTRETINOIN [Suspect]
     Active Substance: ISOTRETINOIN
     Dosage: 40 MG, 2X/DAY
     Route: 064
     Dates: start: 202210, end: 20221123
  2. DEPO-PROVERA [Concomitant]
     Active Substance: MEDROXYPROGESTERONE ACETATE
     Dosage: UNK
     Route: 064
     Dates: start: 202210
  3. ALLEGRA ALLERGY [Concomitant]
     Active Substance: FEXOFENADINE HYDROCHLORIDE
     Dosage: UNK
     Route: 064
     Dates: start: 202210, end: 20221223
  4. IBUPROFEN [Concomitant]
     Active Substance: IBUPROFEN
     Dosage: UNK
     Route: 064
     Dates: start: 202210, end: 20221223
  5. EQUATE COUGH DM [Concomitant]
     Active Substance: DEXTROMETHORPHAN HYDROBROMIDE
     Dosage: UNK
     Route: 064
     Dates: start: 202210, end: 20221223
  6. VICKS NYQUIL COLD AND FLU [Concomitant]
     Active Substance: ACETAMINOPHEN\DEXTROMETHORPHAN HYDROBROMIDE\DOXYLAMINE SUCCINATE
     Dosage: UNK
     Route: 064
     Dates: start: 202210, end: 20221223
  7. VICKS NYQUIL COLD AND FLU [Concomitant]
     Active Substance: ACETAMINOPHEN\DEXTROMETHORPHAN HYDROBROMIDE\DOXYLAMINE SUCCINATE
     Dosage: UNK
     Route: 064
     Dates: start: 202210, end: 20221223
  8. FIBER ADVANCE GUMMIES [Concomitant]
     Dosage: UNK
     Route: 064
     Dates: start: 202210, end: 20221223
  9. VITAFUSION PRENATAL [ASCORBIC ACID;CHOLINE CHLORIDE;COLECALCIFEROL;CYA [Concomitant]
     Dosage: UNK
     Route: 064
     Dates: start: 20221223
  10. LEVOTHYROXINE SODIUM [Concomitant]
     Active Substance: LEVOTHYROXINE SODIUM
     Dosage: UNK
     Route: 064
     Dates: start: 20221227
  11. CANNABIS SATIVA SUBSP. INDICA TOP [Concomitant]
     Active Substance: CANNABIS SATIVA SUBSP. INDICA TOP
     Dosage: UNK
     Route: 064
     Dates: start: 202210, end: 20221220
  12. MIDOMAFETAMINE [Concomitant]
     Active Substance: MIDOMAFETAMINE
     Dosage: UNK
     Route: 064
     Dates: start: 20221029, end: 20221104
  13. UNSPECIFIED EMERGENCY BIRTH CONTROL [Concomitant]
     Dosage: UNK, ONCE
     Route: 064

REACTIONS (4)
  - Foetal heart rate increased [Recovered/Resolved]
  - Foetal heart rate decreased [Recovered/Resolved]
  - Foetal exposure during pregnancy [Recovered/Resolved]
  - Ear malformation [Not Recovered/Not Resolved]

NARRATIVE: CASE EVENT DATE: 20221001
